FAERS Safety Report 5716115-1 (Version None)
Quarter: 2008Q2

REPORT INFORMATION
  Report Type: 
  Country: None (occurrence: None)
  Receive Date: 20080423
  Receipt Date: 20080423
  Transmission Date: 20081010
  Serious: Yes (Other)
  Sender: FDA-Public Use
  Company Number: None

PATIENT
  Sex: Male
  Weight: 57.1532 kg

DRUGS (1)
  1. SINGULAIR [Suspect]
     Indication: SEASONAL ALLERGY
     Dosage: 10MG ONE TABLET PER DAY PO
     Route: 048
     Dates: start: 20060401, end: 20080426

REACTIONS (6)
  - ABNORMAL BEHAVIOUR [None]
  - ALCOHOL USE [None]
  - DELINQUENCY [None]
  - DRUG ABUSE [None]
  - EDUCATIONAL PROBLEM [None]
  - SUICIDAL IDEATION [None]
